FAERS Safety Report 4545314-X (Version None)
Quarter: 2005Q1

REPORT INFORMATION
  Report Type: 
  Country: None (occurrence: None)
  Receive Date: 20050103
  Receipt Date: 20041220
  Transmission Date: 20050727
  Serious: Yes (Hospitalization, Other)
  Sender: FDA-Public Use
  Company Number: HQWYE108020DEC04

PATIENT
  Age: 10 Year
  Sex: Female

DRUGS (2)
  1. ADVIL [Suspect]
     Dosage: ORAL
     Route: 048
  2. ACETAMINOPHEN [Concomitant]

REACTIONS (9)
  - ANGIONEUROTIC OEDEMA [None]
  - DRUG INTOLERANCE [None]
  - DYSPHONIA [None]
  - EYELID OEDEMA [None]
  - FACE OEDEMA [None]
  - PRURITUS [None]
  - RHINORRHOEA [None]
  - TONGUE OEDEMA [None]
  - URTICARIA [None]
